FAERS Safety Report 17821296 (Version 3)
Quarter: 2020Q2

REPORT INFORMATION
  Report Type: Report from Study
  Country: DE (occurrence: DE)
  Receive Date: 20200525
  Receipt Date: 20200625
  Transmission Date: 20200714
  Serious: Yes (Hospitalization)
  Sender: FDA-Public Use
  Company Number: DE-SA-2020SA131792

PATIENT

DRUGS (8)
  1. LENALIDOMIDE [Suspect]
     Active Substance: LENALIDOMIDE
     Dosage: 15 MG, QD
     Route: 048
     Dates: start: 20190417, end: 20190417
  2. DEXAMETHASONE. [Suspect]
     Active Substance: DEXAMETHASONE
     Indication: PLASMA CELL MYELOMA
     Dosage: 40 MG, QW
     Route: 048
     Dates: start: 20200513, end: 20200513
  3. ISATUXIMAB [Suspect]
     Active Substance: ISATUXIMAB
     Dosage: 10 MG/KG, QW
     Route: 042
     Dates: start: 20190417, end: 20190417
  4. LENALIDOMIDE [Suspect]
     Active Substance: LENALIDOMIDE
     Indication: PLASMA CELL MYELOMA
     Dosage: 15 MG, QD
     Route: 048
     Dates: start: 20200518, end: 20200518
  5. DEXAMETHASONE. [Suspect]
     Active Substance: DEXAMETHASONE
     Dosage: 40 MG, QW
     Route: 048
     Dates: start: 20190417, end: 20190417
  6. ISATUXIMAB [Suspect]
     Active Substance: ISATUXIMAB
     Indication: PLASMA CELL MYELOMA
     Dosage: 10 MG/KG, QW
     Route: 042
     Dates: start: 20200513, end: 20200513
  7. CARFILZOMIB [Suspect]
     Active Substance: CARFILZOMIB
     Indication: PLASMA CELL MYELOMA
     Dosage: 36 MG/M2, BIW
     Route: 042
     Dates: start: 20200513, end: 20200513
  8. CARFILZOMIB [Suspect]
     Active Substance: CARFILZOMIB
     Dosage: 36 MG/M2, BIW
     Route: 042
     Dates: start: 20190417, end: 20190417

REACTIONS (1)
  - Febrile neutropenia [Recovered/Resolved]

NARRATIVE: CASE EVENT DATE: 20200518
